FAERS Safety Report 7676628-2 (Version None)
Quarter: 2011Q3

REPORT INFORMATION
  Report Type: 
  Country: None (occurrence: None)
  Receive Date: 20110811
  Receipt Date: 20110802
  Transmission Date: 20111222
  Serious: Yes (Hospitalization)
  Sender: FDA-Public Use
  Company Number: GB-AMGEN-GBRCT2011038979

PATIENT
  Age: 67 Year
  Sex: Female

DRUGS (3)
  1. BLINDED PLACEBO [Suspect]
     Indication: BREAST CANCER
     Dosage: 120 MG, Q3WK
     Route: 058
     Dates: start: 20110513
  2. DOCETAXEL [Concomitant]
     Dosage: 160 MG, UNK
     Route: 042
     Dates: start: 20110727
  3. BLINDED DENOSUMAB [Suspect]
     Indication: BREAST CANCER
     Dosage: 120 MG, Q3WK
     Route: 058
     Dates: start: 20110513

REACTIONS (2)
  - ABDOMINAL PAIN [None]
  - DIARRHOEA [None]
